FAERS Safety Report 10719068 (Version 2)
Quarter: 2015Q1

REPORT INFORMATION
  Report Type: Spontaneous
  Country: US (occurrence: US)
  Receive Date: 20150119
  Receipt Date: 20150119
  Transmission Date: 20150721
  Serious: No
  Sender: FDA-Public Use
  Company Number: US-UNITED THERAPEUTICS-UNT-2014-002949

PATIENT
  Sex: Female
  Weight: 100.68 kg

DRUGS (2)
  1. REMODULIN [Suspect]
     Active Substance: TREPROSTINIL
     Indication: PULMONARY ARTERIAL HYPERTENSION
     Dosage: 0.014 ?G/KG/MIN, CONTINUING
     Route: 058
     Dates: start: 20140405
  2. REVATIO [Concomitant]
     Active Substance: SILDENAFIL CITRATE
     Indication: PRODUCT USED FOR UNKNOWN INDICATION

REACTIONS (3)
  - Infusion site erythema [Unknown]
  - Infusion site nodule [Unknown]
  - Infusion site pustule [Unknown]

NARRATIVE: CASE EVENT DATE: 2014
